FAERS Safety Report 12294953 (Version 1)
Quarter: 2016Q2

REPORT INFORMATION
  Report Type: Spontaneous
  Country: US (occurrence: None)
  Receive Date: 20160421
  Receipt Date: 20160421
  Transmission Date: 20160815
  Serious: Yes (Life-Threatening, Disabling, Other)
  Sender: FDA-Public Use
  Company Number: None

PATIENT
  Age: 36 Year
  Sex: Female
  Weight: 63.5 kg

DRUGS (4)
  1. BABY ASPIRIN [Concomitant]
     Active Substance: ASPIRIN
  2. ATIVAN [Concomitant]
     Active Substance: LORAZEPAM
  3. AMBIEN [Concomitant]
     Active Substance: ZOLPIDEM TARTRATE
  4. PREMARIN [Suspect]
     Active Substance: ESTROGENS, CONJUGATED
     Indication: MENOPAUSE
     Dosage: 1 TABLET(S) IN THE MORNING TAKEN BY MOUTH
     Route: 048
     Dates: start: 20150403, end: 20151211

REACTIONS (11)
  - Fall [None]
  - Communication disorder [None]
  - Hypoacusis [None]
  - Balance disorder [None]
  - Disturbance in attention [None]
  - Cerebrovascular accident [None]
  - Memory impairment [None]
  - Ear infection [None]
  - Vision blurred [None]
  - Nervous system disorder [None]
  - Dizziness [None]

NARRATIVE: CASE EVENT DATE: 20151123
